FAERS Safety Report 8791914 (Version 1)
Quarter: 2012Q4

REPORT INFORMATION
  Report Type: 
  Country: LB (occurrence: LB)
  Receive Date: 20120918
  Receipt Date: 20120918
  Transmission Date: 20130627
  Serious: Yes (Hospitalization)
  Sender: FDA-Public Use
  Company Number: LB-SANOFI-AVENTIS-2012SA067489

PATIENT
  Sex: Female

DRUGS (1)
  1. LOVENOX [Suspect]
     Indication: RECURRENT ABORTION
     Route: 058

REACTIONS (3)
  - Spinal fracture [Recovering/Resolving]
  - Osteoporosis [Unknown]
  - Exposure during pregnancy [Unknown]
